FAERS Safety Report 15131292 (Version 1)
Quarter: 2018Q3

REPORT INFORMATION
  Report Type: Report from Study
  Country: US (occurrence: US)
  Receive Date: 20180711
  Receipt Date: 20180711
  Transmission Date: 20181010
  Serious: Yes (Other)
  Sender: FDA-Public Use
  Company Number: US-SHIRE-US201823456

PATIENT
  Sex: Female

DRUGS (1)
  1. HUMAN IMMUNOGLOBULIN; HYALURONIDASE [Suspect]
     Active Substance: HUMAN IMMUNOGLOBULIN G\HYALURONIDASE RECOMBINANT HUMAN
     Indication: SELECTIVE IGG SUBCLASS DEFICIENCY
     Route: 065

REACTIONS (6)
  - Renal impairment [Unknown]
  - Pyrexia [Unknown]
  - Vein disorder [Unknown]
  - Autoinflammatory disease [Unknown]
  - Inappropriate schedule of drug administration [Unknown]
  - Lung disorder [Unknown]
